FAERS Safety Report 18728000 (Version 2)
Quarter: 2021Q1

REPORT INFORMATION
  Report Type: Report from Study
  Country: CH (occurrence: CH)
  Receive Date: 20210111
  Receipt Date: 20210311
  Transmission Date: 20210419
  Serious: Yes (Other)
  Sender: FDA-Public Use
  Company Number: PHHY2019CH227578

PATIENT
  Age: 52 Year
  Sex: Female

DRUGS (13)
  1. KISQALI [Suspect]
     Active Substance: RIBOCICLIB
     Dosage: 200 MG
     Route: 048
     Dates: start: 20200316
  2. KISQALI [Suspect]
     Active Substance: RIBOCICLIB
     Indication: BREAST CANCER
     Dosage: 600 MG (A DAY 3 WEEKS, 1 WEEK OFF)
     Route: 048
     Dates: start: 20190520, end: 20190603
  3. KISQALI [Suspect]
     Active Substance: RIBOCICLIB
     Dosage: 400 MG
     Route: 048
     Dates: start: 20190715, end: 20190804
  4. KISQALI [Suspect]
     Active Substance: RIBOCICLIB
     Dosage: 400 MG
     Route: 048
     Dates: start: 20191209, end: 20200126
  5. KISQALI [Suspect]
     Active Substance: RIBOCICLIB
     Dosage: 400 MG
     Route: 048
     Dates: start: 20200210, end: 20200316
  6. FEMARA [Suspect]
     Active Substance: LETROZOLE
     Indication: BREAST CANCER
     Dosage: 2.5 MG
     Route: 048
     Dates: start: 20190401
  7. KISQALI [Suspect]
     Active Substance: RIBOCICLIB
     Dosage: 600 MG
     Route: 048
     Dates: start: 20190812, end: 20190901
  8. KISQALI [Suspect]
     Active Substance: RIBOCICLIB
     Dosage: 200 MG
     Route: 048
     Dates: start: 20201221
  9. KISQALI [Suspect]
     Active Substance: RIBOCICLIB
     Dosage: 400 MG
     Route: 048
     Dates: start: 20190604, end: 20190609
  10. KISQALI [Suspect]
     Active Substance: RIBOCICLIB
     Dosage: 600 MG
     Route: 048
     Dates: start: 20190617, end: 20190707
  11. XGEVA [Concomitant]
     Active Substance: DENOSUMAB
     Indication: METASTASES TO BONE
     Dosage: 120 MG
     Route: 058
     Dates: start: 20190325
  12. ZOLADEX [Concomitant]
     Active Substance: GOSERELIN ACETATE
     Indication: POSTMENOPAUSE
     Dosage: 10.8 MG
     Route: 065
     Dates: start: 20190325
  13. KISQALI [Suspect]
     Active Substance: RIBOCICLIB
     Dosage: 600 MG
     Route: 048
     Dates: start: 20190909, end: 20191208

REACTIONS (8)
  - Carpal tunnel syndrome [Recovered/Resolved]
  - Renal failure [Recovered/Resolved]
  - Nasopharyngitis [Recovered/Resolved]
  - Neutropenia [Recovered/Resolved]
  - Neutropenia [Recovered/Resolved]
  - Nasopharyngitis [Recovered/Resolved]
  - Neutropenia [Recovered/Resolved]
  - Fatigue [Unknown]

NARRATIVE: CASE EVENT DATE: 20190528
